FAERS Safety Report 19286112 (Version 1)
Quarter: 2021Q2

REPORT INFORMATION
  Report Type: Spontaneous
  Country: ES (occurrence: ES)
  Receive Date: 20210521
  Receipt Date: 20210521
  Transmission Date: 20210717
  Serious: Yes (Hospitalization)
  Sender: FDA-Public Use
  Company Number: ES-AMGEN-ESPSP2021076858

PATIENT
  Age: 75 Year
  Sex: Female

DRUGS (6)
  1. DIGOXINA [Concomitant]
     Active Substance: DIGOXIN
     Indication: ATRIAL FIBRILLATION
     Dosage: UNK
     Route: 048
     Dates: start: 201701
  2. BEVACIZUMAB. [Suspect]
     Active Substance: BEVACIZUMAB
     Indication: HEREDITARY HAEMORRHAGIC TELANGIECTASIA
     Dosage: 315 MILLIGRAM, QMO
     Route: 042
     Dates: start: 20191119, end: 20200729
  3. BISOPROLOL [Concomitant]
     Active Substance: BISOPROLOL
     Indication: ATRIAL FIBRILLATION
     Dosage: UNK
     Route: 048
     Dates: start: 201704
  4. RALOXIFENO [RALOXIFENE] [Concomitant]
     Dosage: UNK
     Route: 048
     Dates: start: 201712, end: 20200814
  5. VENOFER [Suspect]
     Active Substance: IRON SUCROSE
     Indication: HEREDITARY HAEMORRHAGIC TELANGIECTASIA
     Dosage: 600 MILLIGRAM, TOTAL
     Route: 042
     Dates: start: 20200714, end: 20200729
  6. OMEPRAZOL [OMEPRAZOLE] [Concomitant]
     Active Substance: OMEPRAZOLE
     Dosage: UNK
     Route: 048
     Dates: start: 201007

REACTIONS (2)
  - Tremor [Not Recovered/Not Resolved]
  - Asthenia [Recovering/Resolving]

NARRATIVE: CASE EVENT DATE: 20200729
